FAERS Safety Report 8817528 (Version 1)
Quarter: 2012Q4

REPORT INFORMATION
  Report Type: 
  Country: GB (occurrence: GB)
  Receive Date: 20121004
  Receipt Date: 20121004
  Transmission Date: 20130627
  Serious: Yes (Hospitalization, Other)
  Sender: FDA-Public Use
  Company Number: GB-009507513-1207GBR004938

PATIENT
  Age: 69 Year
  Sex: Female
  Weight: 64 kg

DRUGS (18)
  1. MIRTAZAPINE [Suspect]
     Indication: PRODUCT USED FOR UNKNOWN INDICATION
     Dosage: 30 mg, UNK
     Route: 065
     Dates: start: 20120501
  2. MIRTAZAPINE [Suspect]
     Dosage: 15 mg, qd
     Route: 065
  3. LORAZEPAM [Suspect]
     Indication: PRODUCT USED FOR UNKNOWN INDICATION
     Dosage: 1 mg, tid
     Route: 048
     Dates: start: 20120329, end: 20120523
  4. METOCLOPRAMIDE [Suspect]
     Indication: PRODUCT USED FOR UNKNOWN INDICATION
     Dosage: 10 mg, prn
     Route: 048
     Dates: start: 20080806, end: 201109
  5. METOCLOPRAMIDE [Suspect]
     Dosage: UNK
     Dates: start: 20080806, end: 201109
  6. PROPRANOLOL HYDROCHLORIDE [Suspect]
     Indication: PRODUCT USED FOR UNKNOWN INDICATION
     Dosage: 10 mg, q4h
     Route: 048
     Dates: start: 20120501
  7. SEROXAT [Suspect]
     Indication: DEPRESSION
     Dosage: 20 mg, bid
     Route: 048
     Dates: start: 19970707, end: 20111206
  8. SEROXAT [Suspect]
     Dosage: 10 mg, UNK
     Dates: start: 200102, end: 201005
  9. SEROXAT [Suspect]
     Dosage: 20 mg, UNK
     Dates: start: 201007, end: 201109
  10. SEROXAT [Suspect]
     Dosage: 40 mg, UNK
     Dates: start: 20111013
  11. TETRABENAZINE [Suspect]
     Indication: PRODUCT USED FOR UNKNOWN INDICATION
     Dosage: 4.5 mg, qd
     Route: 048
     Dates: start: 20111128, end: 20120320
  12. ACRIVASTINE [Concomitant]
     Dosage: 8 mg, tid
     Dates: start: 19950728
  13. ATORVASTATIN CALCIUM [Concomitant]
     Dosage: 40 mg, qd
     Dates: start: 20031114
  14. BECONASE [Concomitant]
     Dosage: UNK
     Dates: start: 20071120
  15. BENDROFLUAZIDE TABLETS [Concomitant]
     Dosage: 2.5 mg, qd
     Dates: start: 20050420
  16. FENOFIBRATE [Concomitant]
     Dosage: 160 mg, qd
     Dates: start: 20030520
  17. LANSOPRAZOLE [Concomitant]
     Dosage: 30 mg, qd
     Dates: start: 20080627
  18. RAMIPRIL [Concomitant]
     Dosage: 2.5 mg, qd
     Dates: start: 20080201

REACTIONS (5)
  - Eating disorder [Not Recovered/Not Resolved]
  - Fall [Not Recovered/Not Resolved]
  - Muscle contractions involuntary [Not Recovered/Not Resolved]
  - Hallucination [Not Recovered/Not Resolved]
  - Akathisia [Not Recovered/Not Resolved]
